FAERS Safety Report 21959930 (Version 2)
Quarter: 2023Q1

REPORT INFORMATION
  Report Type: Spontaneous
  Country: JP (occurrence: JP)
  Receive Date: 20230206
  Receipt Date: 20230228
  Transmission Date: 20230418
  Serious: Yes (Hospitalization, Other)
  Sender: FDA-Public Use
  Company Number: JP-SA-2023SA037871

PATIENT
  Age: 59 Year
  Sex: Male
  Weight: 86.9 kg

DRUGS (8)
  1. DUPIXENT [Suspect]
     Active Substance: DUPILUMAB
     Indication: Asthma
     Dosage: 300 MG, QOW
     Route: 058
     Dates: start: 20221209, end: 20230106
  2. PREDONINE [Concomitant]
     Active Substance: PREDNISOLONE
     Indication: Pulmonary alveolar haemorrhage
     Dosage: 60 MG/DAY
     Route: 048
     Dates: start: 20230126, end: 20230130
  3. PREDONINE [Concomitant]
     Active Substance: PREDNISOLONE
     Indication: Eosinophilic pneumonia
     Dosage: 50 MG/DAY
     Route: 048
     Dates: start: 20230131, end: 20230204
  4. PREDONINE [Concomitant]
     Active Substance: PREDNISOLONE
     Dosage: 40 MG/DAY
     Route: 048
     Dates: start: 20230205, end: 20230209
  5. PREDONINE [Concomitant]
     Active Substance: PREDNISOLONE
     Dosage: 30 MG/DAY
     Route: 048
     Dates: start: 20230210, end: 20230214
  6. PREDONINE [Concomitant]
     Active Substance: PREDNISOLONE
     Dosage: 25 MG/DAY
     Route: 048
     Dates: start: 20230215
  7. PREDONINE [Concomitant]
     Active Substance: PREDNISOLONE
     Dosage: UNKNOWN
     Route: 048
     Dates: start: 20211017
  8. PREDONINE [Concomitant]
     Active Substance: PREDNISOLONE
     Dosage: THE DOSE WAS GRADUALLY REDUCED.
     Route: 048

REACTIONS (1)
  - Pulmonary alveolar haemorrhage [Recovered/Resolved]

NARRATIVE: CASE EVENT DATE: 20221223
